FAERS Safety Report 7900408-3 (Version None)
Quarter: 2011Q4

REPORT INFORMATION
  Report Type: 
  Country: None (occurrence: None)
  Receive Date: 20111108
  Receipt Date: 20111103
  Transmission Date: 20120403
  Serious: No
  Sender: FDA-Public Use
  Company Number: US-PFIZER INC-2011230717

PATIENT
  Sex: Male
  Weight: 79.365 kg

DRUGS (2)
  1. IBUPROFEN (ADVIL) [Suspect]
     Indication: MIGRAINE
     Dosage: 200 MG, 1X/DAY
     Route: 048
     Dates: start: 20110927, end: 20110927
  2. IBUPROFEN (ADVIL) [Suspect]
     Indication: HEADACHE

REACTIONS (2)
  - MALAISE [None]
  - VOMITING [None]
